FAERS Safety Report 4637170-6 (Version None)
Quarter: 2005Q2

REPORT INFORMATION
  Report Type: 
  Country: None (occurrence: None)
  Receive Date: 20050325
  Receipt Date: 20041228
  Transmission Date: 20051028
  Serious: No
  Sender: FDA-Public Use
  Company Number: USA040978469

PATIENT
  Age: 79 Year
  Sex: Female
  Weight: 62 kg

DRUGS (6)
  1. FORTEO [Suspect]
     Indication: OSTEOPOROSIS
     Dosage: 20 UG DAY
     Dates: start: 20040720
  2. LIPITOR [Concomitant]
  3. SYNTHROID [Concomitant]
  4. VITAMINS NOS [Concomitant]
  5. CALCIUM GLUCONATE [Concomitant]
  6. LODINE [Concomitant]

REACTIONS (8)
  - ARTHRALGIA [None]
  - ASTHENIA [None]
  - DIFFICULTY IN WALKING [None]
  - ERYTHEMA [None]
  - JOINT SWELLING [None]
  - MUSCULOSKELETAL STIFFNESS [None]
  - SWELLING [None]
  - WEIGHT INCREASED [None]
